FAERS Safety Report 6426655-8 (Version None)
Quarter: 2009Q4

REPORT INFORMATION
  Report Type: 
  Country: None (occurrence: None)
  Receive Date: 20091104
  Receipt Date: 20091023
  Transmission Date: 20100525
  Serious: Yes (Hospitalization)
  Sender: FDA-Public Use
  Company Number: TR-ELI_LILLY_AND_COMPANY-TR200910005793

PATIENT
  Age: 15 Year
  Sex: Male

DRUGS (1)
  1. HUMATROPE [Suspect]
     Indication: BLOOD GROWTH HORMONE DECREASED
     Dosage: 12 MG, DAILY (1/D)
     Route: 058
     Dates: start: 20081001

REACTIONS (2)
  - OEDEMA PERIPHERAL [None]
  - PAIN IN EXTREMITY [None]
